FAERS Safety Report 14536698 (Version 1)
Quarter: 2018Q1

REPORT INFORMATION
  Report Type: Spontaneous
  Country: US (occurrence: US)
  Receive Date: 20180215
  Receipt Date: 20180215
  Transmission Date: 20180509
  Serious: Yes (Hospitalization)
  Sender: FDA-Public Use
  Company Number: None

PATIENT
  Age: 80 Year
  Sex: Female
  Weight: 65.5 kg

DRUGS (12)
  1. MAG-OX [Concomitant]
     Active Substance: MAGNESIUM OXIDE
  2. LIDODERM [Concomitant]
     Active Substance: LIDOCAINE
  3. BENADRYL [Concomitant]
     Active Substance: DIPHENHYDRAMINE HYDROCHLORIDE
  4. FANTYL [Concomitant]
  5. TOPROL XL [Concomitant]
     Active Substance: METOPROLOL SUCCINATE
  6. ALBUTEROL. [Concomitant]
     Active Substance: ALBUTEROL
  7. PROTONIX [Concomitant]
     Active Substance: PANTOPRAZOLE SODIUM
  8. VANCOMYCIN [Suspect]
     Active Substance: VANCOMYCIN
     Indication: CARDIAC PACEMAKER INSERTION
     Dosage: 1000 MG INTRA-OP CON,T PRN IV
     Route: 042
  9. SINEMET [Concomitant]
     Active Substance: CARBIDOPA\LEVODOPA
  10. GABAPENTIN. [Concomitant]
     Active Substance: GABAPENTIN
  11. CLARITIN [Concomitant]
     Active Substance: LORATADINE
  12. LASIX [Concomitant]
     Active Substance: FUROSEMIDE

REACTIONS (3)
  - Respiratory distress [None]
  - Infusion related reaction [None]
  - Anaphylactic reaction [None]

NARRATIVE: CASE EVENT DATE: 20170620
